FAERS Safety Report 14210263 (Version 1)
Quarter: 2017Q4

REPORT INFORMATION
  Report Type: Spontaneous
  Country: US (occurrence: US)
  Receive Date: 20171121
  Receipt Date: 20171121
  Transmission Date: 20180321
  Serious: No
  Sender: FDA-Public Use
  Company Number: US-B.I. PHARMACEUTICALS,INC./RIDGEFIELD-2017-BI-061461

PATIENT
  Age: 48 Year
  Sex: Male

DRUGS (4)
  1. ATROVENT [Suspect]
     Active Substance: IPRATROPIUM BROMIDE
     Indication: CHRONIC OBSTRUCTIVE PULMONARY DISEASE
     Dosage: 2 PUFFS EVERY 4 -6 HOURS AS NEEDED;  FORM STRENGTH: 17 MCG; FORMULATION: INHALATION AEROSOL? ADMINIS
     Route: 055
     Dates: start: 201612
  2. MUCINEX [Concomitant]
     Active Substance: GUAIFENESIN
     Indication: PULMONARY CONGESTION
     Dosage: ;  FORM STRENGTH: 40MG; FORMULATION: ORAL SOLUTION
     Route: 048
  3. VICKS DAYQUIL [Concomitant]
     Active Substance: DEXTROMETHORPHAN HYDROBROMIDE\GUAIFENESIN
     Indication: PRODUCT USED FOR UNKNOWN INDICATION
     Route: 065
  4. ALBUTEROL INHALER [Concomitant]
     Active Substance: ALBUTEROL
     Indication: CHRONIC OBSTRUCTIVE PULMONARY DISEASE
     Dosage: 2 PUFFS Q 4-6 HOURS AS NEEDED;  FORM STRENGTH: 90MCG; FORMULATION: INHALATION AEROSOL
     Route: 055

REACTIONS (3)
  - Cough [Unknown]
  - Pulmonary congestion [Unknown]
  - Lung disorder [Unknown]

NARRATIVE: CASE EVENT DATE: 20171111
